FAERS Safety Report 15920202 (Version 1)
Quarter: 2019Q1

REPORT INFORMATION
  Report Type: Report from Study
  Country: US (occurrence: US)
  Receive Date: 20190205
  Receipt Date: 20190205
  Transmission Date: 20190417
  Serious: Yes (Hospitalization)
  Sender: FDA-Public Use
  Company Number: US-GILEAD-2019-0388769

PATIENT
  Age: 16 Year
  Sex: Female

DRUGS (3)
  1. IVACAFTOR [Concomitant]
     Active Substance: IVACAFTOR
  2. TEZACAFTOR [Concomitant]
     Active Substance: TEZACAFTOR
  3. AZTREONAM LYSINE [Suspect]
     Active Substance: AZTREONAM LYSINE
     Indication: CYSTIC FIBROSIS
     Dosage: 1 DF, TID X 28, OFF 28
     Route: 055
     Dates: start: 20160610

REACTIONS (1)
  - Lung disorder [Unknown]

NARRATIVE: CASE EVENT DATE: 20190107
